FAERS Safety Report 13290428 (Version 3)
Quarter: 2017Q4

REPORT INFORMATION
  Report Type: Spontaneous
  Country: TR (occurrence: TR)
  Receive Date: 20170303
  Receipt Date: 20171011
  Transmission Date: 20180320
  Serious: Yes (Other)
  Sender: FDA-Public Use
  Company Number: TR-009507513-1702TUR010000

PATIENT
  Age: 26 Year
  Sex: Male

DRUGS (1)
  1. RIBAVIRIN. [Suspect]
     Active Substance: RIBAVIRIN
     Indication: ANTIVIRAL PROPHYLAXIS
     Dosage: 2 G PER DAY DIVIDED IN FOUR DOSES
     Route: 048

REACTIONS (3)
  - Hepatitis [Recovered/Resolved]
  - Off label use [Unknown]
  - Enteritis [Recovered/Resolved]
